FAERS Safety Report 19370265 (Version 4)
Quarter: 2021Q3

REPORT INFORMATION
  Report Type: Other
  Country: MX (occurrence: MX)
  Receive Date: 20210603
  Receipt Date: 20210820
  Transmission Date: 20211014
  Serious: Yes (Life-Threatening, Hospitalization, Other)
  Sender: FDA-Public Use
  Company Number: MX-ROCHE-2748585

PATIENT
  Age: 74 Year
  Sex: Female
  Weight: 58 kg

DRUGS (11)
  1. BEVACIZUMAB. [Suspect]
     Active Substance: BEVACIZUMAB
     Indication: HEPATOCELLULAR CARCINOMA
     Route: 042
     Dates: start: 20201001, end: 20210513
  2. DULOXETINE. [Concomitant]
     Active Substance: DULOXETINE
  3. RIFAXIMIN. [Concomitant]
     Active Substance: RIFAXIMIN
  4. ATEZOLIZUMAB. [Suspect]
     Active Substance: ATEZOLIZUMAB
     Indication: HEPATOCELLULAR CARCINOMA
     Route: 042
     Dates: start: 20201001, end: 20210408
  5. PREDNISONE. [Concomitant]
     Active Substance: PREDNISONE
  6. METFORMIN [Concomitant]
     Active Substance: METFORMIN HYDROCHLORIDE
  7. LACTULAX [Concomitant]
  8. MILK OF MAGNESIA [Concomitant]
     Active Substance: MAGNESIUM HYDROXIDE
  9. OMEPRAZOLE. [Concomitant]
     Active Substance: OMEPRAZOLE
  10. ONDANSETRON [Concomitant]
     Active Substance: ONDANSETRON
  11. SPIRONOLACTONE. [Concomitant]
     Active Substance: SPIRONOLACTONE

REACTIONS (17)
  - Transaminases increased [Unknown]
  - Anaemia [Unknown]
  - Mucosal inflammation [Unknown]
  - Gamma-glutamyltransferase increased [Not Recovered/Not Resolved]
  - Aspartate aminotransferase increased [Unknown]
  - Off label use [Unknown]
  - Pneumonitis [Recovered/Resolved]
  - Hepatic encephalopathy [Not Recovered/Not Resolved]
  - Neutropenia [Unknown]
  - Blood alkaline phosphatase increased [Unknown]
  - Deep vein thrombosis [Not Recovered/Not Resolved]
  - Hepatic cirrhosis [Unknown]
  - Alanine aminotransferase increased [Unknown]
  - Nausea [Unknown]
  - Hyperbilirubinaemia [Unknown]
  - Pruritus [Unknown]
  - Fatigue [Unknown]

NARRATIVE: CASE EVENT DATE: 20201020
